FAERS Safety Report 20730763 (Version 1)
Quarter: 2022Q2

REPORT INFORMATION
  Report Type: Spontaneous
  Country: US (occurrence: US)
  Receive Date: 20220420
  Receipt Date: 20220420
  Transmission Date: 20220721
  Serious: Yes (Other)
  Sender: FDA-Public Use
  Company Number: US-ASTELLAS-2022US004276

PATIENT
  Age: 63 Year
  Sex: Male

DRUGS (10)
  1. LEXISCAN [Suspect]
     Active Substance: REGADENOSON
     Indication: Scan myocardial perfusion
     Route: 042
     Dates: start: 20220202, end: 20220202
  2. LEXISCAN [Suspect]
     Active Substance: REGADENOSON
     Indication: Scan myocardial perfusion
     Route: 042
     Dates: start: 20220202, end: 20220202
  3. LEXISCAN [Suspect]
     Active Substance: REGADENOSON
     Indication: Scan myocardial perfusion
     Route: 042
     Dates: start: 20220202, end: 20220202
  4. LEXISCAN [Suspect]
     Active Substance: REGADENOSON
     Indication: Scan myocardial perfusion
     Route: 042
     Dates: start: 20220202, end: 20220202
  5. LEXISCAN [Suspect]
     Active Substance: REGADENOSON
     Indication: Chest pain
  6. LEXISCAN [Suspect]
     Active Substance: REGADENOSON
     Indication: Chest pain
  7. LEXISCAN [Suspect]
     Active Substance: REGADENOSON
     Indication: Chest pain
  8. LEXISCAN [Suspect]
     Active Substance: REGADENOSON
     Indication: Chest pain
  9. ELIQUIS [Concomitant]
     Active Substance: APIXABAN
     Indication: Product used for unknown indication
     Dosage: UNK UNK, UNKNOWN FREQ.
     Route: 065
  10. LOSARTAN [Concomitant]
     Active Substance: LOSARTAN
     Indication: Product used for unknown indication
     Dosage: UNK UNK, UNKNOWN FREQ.
     Route: 065

REACTIONS (2)
  - Atrioventricular block complete [Recovered/Resolved]
  - Atrial fibrillation [Recovered/Resolved]

NARRATIVE: CASE EVENT DATE: 20220202
